FAERS Safety Report 25172897 (Version 1)
Quarter: 2025Q2

REPORT INFORMATION
  Report Type: Spontaneous
  Country: US (occurrence: None)
  Receive Date: 20250407
  Receipt Date: 20250407
  Transmission Date: 20250717
  Serious: Yes (Life-Threatening, Hospitalization)
  Sender: FDA-CTU
  Company Number: None

PATIENT
  Age: 13 Year
  Sex: Female

DRUGS (1)
  1. EPIDIOLEX [Suspect]
     Active Substance: CANNABIDIOL
     Indication: Epilepsy
     Dosage: 100MG BID ORAL ?
     Route: 048
     Dates: start: 20250130

REACTIONS (2)
  - Self-injurious ideation [None]
  - Intentional self-injury [None]

NARRATIVE: CASE EVENT DATE: 20250331
